FAERS Safety Report 17000452 (Version 1)
Quarter: 2019Q4

REPORT INFORMATION
  Report Type: Spontaneous
  Country: TH (occurrence: TH)
  Receive Date: 20191106
  Receipt Date: 20191106
  Transmission Date: 20200122
  Serious: Yes (Other)
  Sender: FDA-Public Use
  Company Number: TH-BAUSCH-BL-2019-059121

PATIENT
  Age: 53 Year
  Sex: Female

DRUGS (1)
  1. PREDNISOLONE. [Suspect]
     Active Substance: PREDNISOLONE
     Indication: MULTIFOCAL MOTOR NEUROPATHY
     Dosage: HIGH DOSE
     Route: 048

REACTIONS (2)
  - Multifocal motor neuropathy [Recovering/Resolving]
  - Condition aggravated [Recovering/Resolving]
